FAERS Safety Report 13977339 (Version 1)
Quarter: 2017Q3

REPORT INFORMATION
  Report Type: Not Available
  Country: US (occurrence: US)
  Receive Date: 20170915
  Receipt Date: 20170915
  Transmission Date: 20171128
  Serious: Yes (Other)
  Sender: FDA-Public Use
  Company Number: US-ANIPHARMA-2017-US-010859

PATIENT
  Age: 58 Year
  Sex: Female

DRUGS (3)
  1. QUETIAPINE. [Concomitant]
     Active Substance: QUETIAPINE
  2. OXYCODONE (NON-SPECIFIC) [Suspect]
     Active Substance: OXYCODONE
  3. ALPRAZOLAM (NON-SPECIFIC) [Concomitant]
     Active Substance: ALPRAZOLAM

REACTIONS (5)
  - Overdose [Unknown]
  - Acute kidney injury [Unknown]
  - Rhabdomyolysis [Unknown]
  - Hyperkalaemia [Unknown]
  - Compartment syndrome [Unknown]
